FAERS Safety Report 4749575-3 (Version None)
Quarter: 2005Q3

REPORT INFORMATION
  Report Type: 
  Country: None (occurrence: None)
  Receive Date: 20050822
  Receipt Date: 20050324
  Transmission Date: 20060218
  Serious: Yes (Other)
  Sender: FDA-Public Use
  Company Number: SER/8/3924

PATIENT
  Sex: Female

DRUGS (3)
  1. PAROXETINE [Suspect]
     Route: 065
     Dates: start: 19970101
  2. CO-PROXAMOL [Suspect]
     Route: 065
  3. ALCOHOL [Suspect]
     Route: 065

REACTIONS (6)
  - AGGRESSION [None]
  - ALCOHOL USE [None]
  - COMPLETED SUICIDE [None]
  - DRUG WITHDRAWAL SYNDROME [None]
  - ILL-DEFINED DISORDER [None]
  - OVERDOSE [None]
